FAERS Safety Report 7568811-1 (Version None)
Quarter: 2011Q2

REPORT INFORMATION
  Report Type: 
  Country: None (occurrence: None)
  Receive Date: 20110623
  Receipt Date: 20110620
  Transmission Date: 20111010
  Serious: Yes (Death, Hospitalization, Other)
  Sender: FDA-Public Use
  Company Number: GB-PFIZER INC-2011135224

PATIENT
  Age: 17 Year
  Sex: Male

DRUGS (4)
  1. SOMATROPIN [Suspect]
     Indication: HYPOPITUITARISM
     Dosage: 1 MG, 1X/DAY
     Dates: start: 19971020
  2. DESMOPRESSIN [Concomitant]
     Dosage: 500 UG, DAILY
     Route: 048
  3. LEVOTHYROXINE SODIUM [Concomitant]
     Dosage: 75 UG, DAILY
     Route: 048
  4. HYDROCORTISONE [Concomitant]
     Dosage: 12.5 MG, DAILY
     Route: 048

REACTIONS (1)
  - DEATH [None]
